FAERS Safety Report 9547763 (Version 1)
Quarter: 2013Q3

REPORT INFORMATION
  Report Type: Spontaneous
  Country: US (occurrence: None)
  Receive Date: 20130923
  Receipt Date: 20130923
  Transmission Date: 20140515
  Serious: Yes (Death, Life-Threatening, Hospitalization)
  Sender: FDA-Public Use
  Company Number: None

PATIENT
  Age: 84 Year
  Sex: Male
  Weight: 74.8 kg

DRUGS (2)
  1. WARFARIN [Suspect]
     Indication: ATRIAL FIBRILLATION
     Dosage: 7.5 QD ORAL?CHRONIC
     Route: 048
  2. WARFARIN [Suspect]
     Indication: HIP FRACTURE
     Dosage: 7.5 QD ORAL?CHRONIC
     Route: 048

REACTIONS (2)
  - Haematoma [None]
  - International normalised ratio abnormal [None]
